FAERS Safety Report 14639825 (Version 1)
Quarter: 2018Q1

REPORT INFORMATION
  Report Type: Report from Study
  Country: DE (occurrence: DE)
  Receive Date: 20180315
  Receipt Date: 20180315
  Transmission Date: 20180509
  Serious: Yes (Hospitalization)
  Sender: FDA-Public Use
  Company Number: DE-ROCHE-2087583

PATIENT
  Age: 51 Year
  Sex: Female

DRUGS (5)
  1. PACLITAXEL. [Suspect]
     Active Substance: PACLITAXEL
     Indication: BREAST CANCER
     Route: 041
     Dates: start: 20180129
  2. PERTUZUMAB. [Suspect]
     Active Substance: PERTUZUMAB
     Route: 041
  3. TRASTUZUMAB. [Suspect]
     Active Substance: TRASTUZUMAB
     Indication: BREAST CANCER
     Dosage: LOADING DOSE
     Route: 041
     Dates: start: 20180129
  4. PERTUZUMAB. [Suspect]
     Active Substance: PERTUZUMAB
     Indication: BREAST CANCER
     Dosage: LOADING DOSE
     Route: 041
     Dates: start: 20180129
  5. TRASTUZUMAB. [Suspect]
     Active Substance: TRASTUZUMAB
     Route: 041

REACTIONS (1)
  - Hypertension [Recovered/Resolved]

NARRATIVE: CASE EVENT DATE: 20180206
